FAERS Safety Report 9550846 (Version 1)
Quarter: 2013Q3

REPORT INFORMATION
  Report Type: Spontaneous
  Country: US (occurrence: US)
  Receive Date: 20130924
  Receipt Date: 20130924
  Transmission Date: 20140515
  Serious: No
  Sender: FDA-Public Use
  Company Number: US-SANOFI-AVENTIS-2013SA059160

PATIENT
  Age: 52 Year
  Sex: Female

DRUGS (8)
  1. AUBAGIO [Suspect]
     Indication: MULTIPLE SCLEROSIS
     Route: 048
     Dates: start: 20121205
  2. CYMBALTA [Concomitant]
  3. MAXALT /NET/ [Concomitant]
  4. XANAX [Concomitant]
  5. LYRICA [Concomitant]
  6. BACLOFEN [Concomitant]
  7. TEMAZEPAM [Concomitant]
  8. LORTAB [Concomitant]
     Dosage: DOSE- 10-500

REACTIONS (5)
  - Tremor [Unknown]
  - Asthenia [Unknown]
  - Vomiting [Recovered/Resolved]
  - Hypoaesthesia [Unknown]
  - Blood pressure increased [Recovered/Resolved]
